FAERS Safety Report 5885707-1 (Version None)
Quarter: 2008Q3

REPORT INFORMATION
  Report Type: 
  Country: None (occurrence: None)
  Receive Date: 20080912
  Receipt Date: 20080827
  Transmission Date: 20090109
  Serious: Yes (Other)
  Sender: FDA-Public Use
  Company Number: US023176

PATIENT
  Age: 25 Year
  Sex: Female

DRUGS (6)
  1. MODAFINIL [Suspect]
     Indication: NARCOLEPSY
     Dosage: 200 MG QD ORAL
     Route: 048
     Dates: start: 20071002, end: 20071011
  2. MODAFINIL [Suspect]
     Indication: NARCOLEPSY
     Dosage: 100 MG QD ORAL
     Route: 048
     Dates: start: 20071012, end: 20071209
  3. RITALIN [Concomitant]
  4. DIAZEPAM [Concomitant]
  5. EVAMYL [Concomitant]
  6. TRAZODONE HCL [Concomitant]

REACTIONS (3)
  - HEADACHE [None]
  - LIVER DISORDER [None]
  - NAUSEA [None]
